FAERS Safety Report 4480304-7 (Version None)
Quarter: 2004Q3

REPORT INFORMATION
  Report Type: 
  Country: None (occurrence: None)
  Receive Date: 20040923
  Receipt Date: 20040708
  Transmission Date: 20050211
  Serious: No
  Sender: FDA-Public Use
  Company Number: USA040155845

PATIENT
  Age: 87 Year
  Sex: Female
  Weight: 65 kg

DRUGS (7)
  1. FORTEO [Suspect]
     Indication: OSTEOPOROSIS
     Dosage: 20 UG/1 DAY
     Dates: start: 20031126
  2. EVISTA [Concomitant]
  3. CALCIUM [Concomitant]
  4. PROTONIX [Concomitant]
  5. ZOCOR [Concomitant]
  6. METOPROLOL [Concomitant]
  7. VIOXX [Concomitant]

REACTIONS (3)
  - BLOOD CALCIUM INCREASED [None]
  - HYPERCALCAEMIA [None]
  - INJECTION SITE HAEMORRHAGE [None]
